FAERS Safety Report 7691233-X (Version None)
Quarter: 2011Q3

REPORT INFORMATION
  Report Type: 
  Country: None (occurrence: None)
  Receive Date: 20110817
  Receipt Date: 20110817
  Transmission Date: 20111222
  Serious: Yes (Hospitalization)
  Sender: FDA-Public Use
  Company Number: None

PATIENT
  Age: 66 Year
  Sex: Male
  Weight: 118.2 kg

DRUGS (2)
  1. QUETIAPINE [Suspect]
     Indication: SLEEP DISORDER
     Dosage: 600 MG HS PO
     Route: 048
     Dates: start: 20080203, end: 20110807
  2. ZOLPIDEM [Suspect]
     Indication: SLEEP DISORDER
     Dosage: 10 MG HS PO
     Route: 048
     Dates: start: 20110715, end: 20110807

REACTIONS (1)
  - SYNCOPE [None]
